FAERS Safety Report 7472715-2 (Version None)
Quarter: 2011Q2

REPORT INFORMATION
  Report Type: 
  Country: None (occurrence: None)
  Receive Date: 20110511
  Receipt Date: 20110427
  Transmission Date: 20111010
  Serious: Yes (Other)
  Sender: FDA-Public Use
  Company Number: JP-JNJFOC-20110501315

PATIENT
  Age: 35 Year
  Sex: Female

DRUGS (9)
  1. TEGRETOL [Concomitant]
     Indication: AFFECTIVE DISORDER
     Route: 048
  2. PRIMPERAN TAB [Concomitant]
     Indication: AFFECTIVE DISORDER
     Route: 048
  3. GOODMIN [Concomitant]
     Indication: AFFECTIVE DISORDER
     Route: 048
  4. LEVOFLOXACIN [Suspect]
     Indication: CYSTITIS
     Route: 048
  5. CEFAZOLIN SODIUM [Suspect]
     Indication: CYSTITIS
     Route: 065
  6. SOLANAX [Concomitant]
     Indication: AFFECTIVE DISORDER
     Route: 048
  7. TEGRETOL [Concomitant]
     Route: 048
  8. SEROQUEL [Concomitant]
     Indication: AFFECTIVE DISORDER
     Route: 048
  9. SEROQUEL [Concomitant]
     Route: 048

REACTIONS (3)
  - INFLUENZA [None]
  - ORTHOPNOEA [None]
  - ANAPHYLACTIC REACTION [None]
